FAERS Safety Report 17852958 (Version 4)
Quarter: 2020Q3

REPORT INFORMATION
  Report Type: Report from Study
  Country: None (occurrence: US)
  Receive Date: 20200603
  Receipt Date: 20200907
  Transmission Date: 20201103
  Serious: Yes (Other)
  Sender: FDA-Public Use
  Company Number: US-ABBVIE-20K-163-3425028-00

PATIENT
  Sex: Female
  Weight: 68.1 kg

DRUGS (2)
  1. HUMIRA [Suspect]
     Active Substance: ADALIMUMAB
     Route: 058
  2. HUMIRA [Suspect]
     Active Substance: ADALIMUMAB
     Indication: CROHN^S DISEASE
     Route: 058
     Dates: end: 20200508

REACTIONS (28)
  - Anal fistula [Recovered/Resolved]
  - White blood cell count increased [Not Recovered/Not Resolved]
  - Musculoskeletal stiffness [Recovering/Resolving]
  - Anal incontinence [Recovering/Resolving]
  - Knee arthroplasty [Not Recovered/Not Resolved]
  - Neck surgery [Recovering/Resolving]
  - Fistula [Not Recovered/Not Resolved]
  - Limb injury [Recovering/Resolving]
  - Impaired healing [Recovering/Resolving]
  - Haemorrhoids [Recovering/Resolving]
  - Tenderness [Recovering/Resolving]
  - Intestinal cyst [Not Recovered/Not Resolved]
  - Loss of personal independence in daily activities [Not Recovered/Not Resolved]
  - Abdominal distension [Recovering/Resolving]
  - Anal fissure [Recovered/Resolved]
  - Pain [Not Recovered/Not Resolved]
  - Haematochezia [Recovering/Resolving]
  - Rotator cuff syndrome [Recovering/Resolving]
  - Skin indentation [Not Recovered/Not Resolved]
  - Intervertebral disc protrusion [Not Recovered/Not Resolved]
  - Colitis ulcerative [Not Recovered/Not Resolved]
  - Skin exfoliation [Recovering/Resolving]
  - Arthritis [Not Recovered/Not Resolved]
  - Neck pain [Recovered/Resolved]
  - Rectal stenosis [Unknown]
  - Skin indentation [Recovering/Resolving]
  - Insomnia [Not Recovered/Not Resolved]
  - Cartilage injury [Recovering/Resolving]

NARRATIVE: CASE EVENT DATE: 2019
